FAERS Safety Report 7290943-6 (Version None)
Quarter: 2011Q1

REPORT INFORMATION
  Report Type: 
  Country: None (occurrence: None)
  Receive Date: 20110214
  Receipt Date: 20110209
  Transmission Date: 20110831
  Serious: Yes (Other)
  Sender: FDA-Public Use
  Company Number: US-BRISTOL-MYERS SQUIBB COMPANY-15533599

PATIENT
  Age: 12 Year
  Sex: Female

DRUGS (5)
  1. CYCLOPHOSPHAMIDE [Suspect]
     Indication: JUVENILE ARTHRITIS
  2. ANAKINRA [Suspect]
     Indication: JUVENILE ARTHRITIS
  3. CYCLOPHOSPHAMIDE [Suspect]
     Indication: JUVENILE ARTHRITIS
  4. IMMUNE GLOBULIN NOS [Suspect]
     Indication: JUVENILE ARTHRITIS
  5. METHYLPREDNISOLONE [Suspect]
     Indication: JUVENILE ARTHRITIS

REACTIONS (5)
  - WEIGHT INCREASED [None]
  - HYPERTENSION [None]
  - IMPAIRED HEALING [None]
  - MYOPATHY [None]
  - DIABETES MELLITUS [None]
